FAERS Safety Report 4745868-4 (Version None)
Quarter: 2005Q3

REPORT INFORMATION
  Report Type: 
  Country: None (occurrence: None)
  Receive Date: 20050816
  Receipt Date: 20050803
  Transmission Date: 20060218
  Serious: Yes (Death, Hospitalization)
  Sender: FDA-Public Use
  Company Number: GXKR2005FR01434

PATIENT
  Age: 72 Year
  Sex: Female

DRUGS (6)
  1. VANCOMYCIN (NGX) [Suspect]
     Dosage: 1.5 G
     Route: 042
     Dates: start: 20050707, end: 20050711
  2. LOVENOX [Suspect]
     Dosage: 40 MG
     Route: 042
     Dates: end: 20050710
  3. TIENAM [Suspect]
     Dosage: 500 MG, QID
     Route: 042
     Dates: start: 20050707, end: 20050712
  4. AZANTAC [Suspect]
     Dosage: BID
     Route: 042
     Dates: start: 20050531
  5. SANDOSTATIN [Suspect]
     Dosage: 100 UG, TID
     Route: 058
  6. TRIFLUCAN [Suspect]
     Dosage: 800 MG
     Route: 042
     Dates: start: 20050707, end: 20050713

REACTIONS (12)
  - ACINETOBACTER INFECTION [None]
  - ANAEMIA [None]
  - ANAEMIA MACROCYTIC [None]
  - GASTROINTESTINAL DISORDER [None]
  - HAEMOPHILUS INFECTION [None]
  - INFLAMMATION [None]
  - MULTI-ORGAN FAILURE [None]
  - PNEUMOCOCCAL INFECTION [None]
  - RESPIRATORY DISTRESS [None]
  - SEPTIC SHOCK [None]
  - STAPHYLOCOCCAL INFECTION [None]
  - THROMBOCYTOPENIA [None]
